APPROVED DRUG PRODUCT: NATROBA
Active Ingredient: SPINOSAD
Strength: 0.9%
Dosage Form/Route: SUSPENSION;TOPICAL
Application: N022408 | Product #001
Applicant: CIPHER PHARMACEUTICALS INC
Approved: Jan 18, 2011 | RLD: Yes | RS: Yes | Type: RX

PATENTS:
Patent 9895388 | Expires: Nov 25, 2033